FAERS Safety Report 18414639 (Version 1)
Quarter: 2020Q4

REPORT INFORMATION
  Report Type: Report from Study
  Country: US (occurrence: US)
  Receive Date: 20201022
  Receipt Date: 20201022
  Transmission Date: 20210114
  Serious: Yes (Congenital Anomaly, Other)
  Sender: FDA-Public Use
  Company Number: US-AUROBINDO-AUR-APL-2020-052581

PATIENT

DRUGS (4)
  1. LAMOTRIGINE. [Suspect]
     Active Substance: LAMOTRIGINE
     Indication: EPILEPSY
     Dosage: 100 MILLIGRAM
     Route: 064
  2. LAMOTRIGINE. [Suspect]
     Active Substance: LAMOTRIGINE
     Indication: AFFECTIVE DISORDER
  3. VALPROIC ACID. [Suspect]
     Active Substance: VALPROIC ACID
     Indication: EPILEPSY
     Dosage: 3000 MILLIGRAM
     Route: 064
  4. VALPROIC ACID. [Suspect]
     Active Substance: VALPROIC ACID
     Indication: AFFECTIVE DISORDER

REACTIONS (5)
  - Atrial septal defect [Unknown]
  - Syndactyly [Unknown]
  - Meningomyelocele [Unknown]
  - Foetal exposure during pregnancy [Unknown]
  - Patent ductus arteriosus [Unknown]
